FAERS Safety Report 7540329-1 (Version None)
Quarter: 2011Q2

REPORT INFORMATION
  Report Type: 
  Country: None (occurrence: None)
  Receive Date: 20110610
  Receipt Date: 20050427
  Transmission Date: 20111010
  Serious: Yes (Death, Hospitalization)
  Sender: FDA-Public Use
  Company Number: PHFR2005IE01195

PATIENT
  Sex: Male

DRUGS (1)
  1. CLOZAPINE [Suspect]
     Indication: SCHIZOPHRENIA
     Route: 048
     Dates: start: 19990210, end: 20050311

REACTIONS (6)
  - INFLUENZA [None]
  - HEADACHE [None]
  - VOMITING [None]
  - BRAIN ABSCESS [None]
  - LOSS OF CONSCIOUSNESS [None]
  - DIARRHOEA [None]
